FAERS Safety Report 8213470-8 (Version None)
Quarter: 2012Q1

REPORT INFORMATION
  Report Type: 
  Country: None (occurrence: None)
  Receive Date: 20120315
  Receipt Date: 20120307
  Transmission Date: 20120608
  Serious: Yes (Other)
  Sender: FDA-Public Use
  Company Number: US-ABBOTT-12P-163-0912971-00

PATIENT
  Age: 81 Year
  Sex: Female

DRUGS (2)
  1. PREMARIN [Suspect]
     Indication: BREAST DISORDER
  2. SYNTHROID [Suspect]
     Indication: PRODUCT USED FOR UNKNOWN INDICATION

REACTIONS (3)
  - BRAIN NEOPLASM [None]
  - MIGRAINE [None]
  - BREAST PAIN [None]
